FAERS Safety Report 5290215-5 (Version None)
Quarter: 2007Q2

REPORT INFORMATION
  Report Type: 
  Country: None (occurrence: None)
  Receive Date: 20070402
  Receipt Date: 20070323
  Transmission Date: 20071010
  Serious: Yes (Hospitalization)
  Sender: FDA-Public Use
  Company Number: 2007VX000964

PATIENT
  Age: 58 Year
  Sex: Female

DRUGS (8)
  1. INFERGEN [Suspect]
     Indication: HEPATITIS C
     Dosage: 9 UG; TIW
     Dates: start: 20061101, end: 20070315
  2. NORVASC [Concomitant]
  3. METOPROLOL SUCCINATE [Concomitant]
  4. VALSARTAN [Concomitant]
  5. LASIX [Concomitant]
  6. SODIUM BICARBONATE [Concomitant]
  7. LEXAPRO [Concomitant]
  8. SEVELAMER [Concomitant]

REACTIONS (12)
  - ARTHRALGIA [None]
  - CELLULITIS [None]
  - DELIRIUM [None]
  - FALL [None]
  - INFECTION [None]
  - INJECTION SITE DISCOMFORT [None]
  - INJECTION SITE IRRITATION [None]
  - INJECTION SITE PAIN [None]
  - INJECTION SITE SCAB [None]
  - MUSCLE TWITCHING [None]
  - OVERDOSE [None]
  - PSYCHOTIC DISORDER [None]
